FAERS Safety Report 13409421 (Version 3)
Quarter: 2018Q1

REPORT INFORMATION
  Report Type: Spontaneous
  Country: US (occurrence: US)
  Receive Date: 20170406
  Receipt Date: 20180119
  Transmission Date: 20180508
  Serious: Yes (Other)
  Sender: FDA-Public Use
  Company Number: US-JNJFOC-20170124439

PATIENT
  Sex: Male

DRUGS (4)
  1. RISPERIDONE. [Suspect]
     Active Substance: RISPERIDONE
     Indication: BIPOLAR DISORDER
     Dosage: IN VARYING DOSE OF 01 AND 03 MG
     Route: 048
     Dates: start: 20091216, end: 20110722
  2. RISPERIDONE. [Suspect]
     Active Substance: RISPERIDONE
     Indication: ATTENTION DEFICIT/HYPERACTIVITY DISORDER
     Dosage: IN VARYING DOSE OF 01 AND 03 MG
     Route: 048
     Dates: start: 20091216, end: 20110722
  3. RISPERDAL [Suspect]
     Active Substance: RISPERIDONE
     Indication: BIPOLAR DISORDER
     Dosage: IN VARYING DOSE OF 0.5 AND 01 MG
     Route: 048
     Dates: start: 20110804, end: 20111020
  4. RISPERDAL [Suspect]
     Active Substance: RISPERIDONE
     Indication: ATTENTION DEFICIT/HYPERACTIVITY DISORDER
     Dosage: IN VARYING DOSE OF 0.5 AND 01 MG
     Route: 048
     Dates: start: 20110804, end: 20111020

REACTIONS (5)
  - Gynaecomastia [Unknown]
  - Glucose tolerance impaired [Recovering/Resolving]
  - Emotional disorder [Unknown]
  - Drug ineffective [Unknown]
  - Obesity [Recovering/Resolving]

NARRATIVE: CASE EVENT DATE: 2010
